FAERS Safety Report 5795781-9 (Version None)
Quarter: 2008Q3

REPORT INFORMATION
  Report Type: 
  Country: None (occurrence: None)
  Receive Date: 20080701
  Receipt Date: 20080317
  Transmission Date: 20090109
  Serious: No
  Sender: FDA-Public Use
  Company Number: US-BAYER-200817412NA

PATIENT
  Age: 23 Year
  Sex: Female
  Weight: 73 kg

DRUGS (3)
  1. MIRENA [Suspect]
     Indication: CONTRACEPTION
     Route: 015
     Dates: start: 20071101
  2. EFFEXOR [Concomitant]
     Indication: POSTPARTUM DEPRESSION
     Route: 048
  3. VALTREX [Concomitant]
     Indication: GENITAL HERPES
     Route: 048
     Dates: start: 20080101

REACTIONS (3)
  - DYSPAREUNIA [None]
  - GENITAL PAIN [None]
  - VAGINAL DISCHARGE [None]
